FAERS Safety Report 8837028 (Version 1)
Quarter: 2012Q4

REPORT INFORMATION
  Report Type: 
  Country: US (occurrence: US)
  Receive Date: 20121012
  Receipt Date: 20121012
  Transmission Date: 20130627
  Serious: No
  Sender: FDA-Public Use
  Company Number: US-MYLANLABS-2012S1014998

PATIENT
  Age: 59 Year
  Sex: Female

DRUGS (8)
  1. IBANDRONATE SODIUM TABLETS [Suspect]
     Indication: OSTEOPOROSIS PROPHYLAXIS
     Dates: start: 20120328
  2. ENALAPRIL [Concomitant]
     Indication: BLOOD PRESSURE INCREASED
  3. HYDROCHLOROTHIAZIDE [Concomitant]
     Indication: BLOOD PRESSURE INCREASED
     Dates: end: 201204
  4. HYDROCHLOROTHIAZIDE [Concomitant]
     Indication: BLOOD PRESSURE INCREASED
     Dates: start: 201204
  5. CITALOPRAM [Concomitant]
     Indication: DEPRESSION
  6. L THYROXINE [Concomitant]
     Indication: HYPOTHYROIDISM
  7. ATORVASTATIN [Concomitant]
     Indication: BLOOD CHOLESTEROL INCREASED
  8. CALTRATE D PLUS MINERALS [Concomitant]

REACTIONS (6)
  - Blood pressure increased [Recovered/Resolved]
  - Muscular weakness [Recovered/Resolved]
  - Hypoaesthesia [Recovered/Resolved]
  - Paraesthesia oral [Recovered/Resolved]
  - Headache [Recovered/Resolved]
  - Paraesthesia [Recovered/Resolved]
